FAERS Safety Report 21521989 (Version 1)
Quarter: 2022Q4

REPORT INFORMATION
  Report Type: Spontaneous
  Country: US (occurrence: None)
  Receive Date: 20221027
  Receipt Date: 20221027
  Transmission Date: 20230113
  Serious: No
  Sender: FDA-Public Use
  Company Number: None

PATIENT
  Age: 90 Year
  Sex: Male

DRUGS (2)
  1. BEBTELOVIMAB [Suspect]
     Active Substance: BEBTELOVIMAB
     Indication: Upper respiratory tract infection
     Dosage: FREQUENCY : ONCE;?
     Route: 042
     Dates: start: 20221005, end: 20221005
  2. BEBTELOVIMAB [Suspect]
     Active Substance: BEBTELOVIMAB
     Indication: COVID-19

REACTIONS (1)
  - Haematuria [None]

NARRATIVE: CASE EVENT DATE: 20221006
